FAERS Safety Report 7465462-4 (Version None)
Quarter: 2011Q2

REPORT INFORMATION
  Report Type: 
  Country: None (occurrence: None)
  Receive Date: 20110509
  Receipt Date: 20110418
  Transmission Date: 20111010
  Serious: Yes (Life-Threatening, Hospitalization)
  Sender: FDA-Public Use
  Company Number: CA-PFIZER INC-2011097906

PATIENT
  Age: 42 Year
  Sex: Female
  Weight: 94 kg

DRUGS (9)
  1. VARENICLINE TARTRATE [Suspect]
     Dosage: 0.5 MG, UNK
     Route: 048
  2. EFFEXOR XR [Concomitant]
     Dosage: UNK
  3. VENTOLIN [Concomitant]
     Dosage: UNK
     Route: 055
  4. METFORMIN [Concomitant]
     Dosage: UNK
  5. PANTOLOC [Concomitant]
     Dosage: UNK
  6. REACTINE [Concomitant]
     Dosage: UNK
  7. VERAPAMIL HYDROCHLORIDE [Concomitant]
     Dosage: UNK
  8. VARENICLINE TARTRATE [Suspect]
     Dosage: 1.0 MG, UNK
     Route: 048
  9. PRAVASTATIN SODIUM [Concomitant]
     Dosage: UNK

REACTIONS (4)
  - TACHYCARDIA [None]
  - HYPERGLYCAEMIA [None]
  - ORAL CANDIDIASIS [None]
  - VULVOVAGINAL CANDIDIASIS [None]
